FAERS Safety Report 5928214-X (Version None)
Quarter: 2008Q4

REPORT INFORMATION
  Report Type: 
  Country: None (occurrence: None)
  Receive Date: 20081023
  Receipt Date: 20081016
  Transmission Date: 20090506
  Serious: Yes (Other)
  Sender: FDA-Public Use
  Company Number: DE-JNJFOC-20080900792

PATIENT
  Sex: Male

DRUGS (1)
  1. REMINYL [Suspect]
     Indication: DEMENTIA
     Route: 048

REACTIONS (1)
  - PROSTATIC SPECIFIC ANTIGEN INCREASED [None]
